FAERS Safety Report 8588327-3 (Version None)
Quarter: 2012Q3

REPORT INFORMATION
  Report Type: 
  Country: None (occurrence: None)
  Receive Date: 20120813
  Receipt Date: 20120801
  Transmission Date: 20120928
  Serious: Yes (Hospitalization)
  Sender: FDA-Public Use
  Company Number: US-ELI_LILLY_AND_COMPANY-US201208000965

PATIENT
  Age: 85 Year
  Sex: Female

DRUGS (5)
  1. PRILOSEC [Concomitant]
  2. PROCARDIA                          /00340701/ [Concomitant]
     Indication: BLOOD PRESSURE
  3. CYMBALTA [Suspect]
     Indication: DEPRESSION
     Dosage: 30 MG, QD
     Dates: start: 20120704
  4. COUMADIN [Concomitant]
  5. LEVOTHYROXINE SODIUM [Concomitant]

REACTIONS (1)
  - PULMONARY EMBOLISM [None]
